FAERS Safety Report 9817716 (Version 1)
Quarter: 2013Q4

REPORT INFORMATION
  Report Type: Spontaneous
  Country: US (occurrence: None)
  Receive Date: 20131223
  Receipt Date: 20131223
  Transmission Date: 20140711
  Serious: Yes (Other)
  Sender: FDA-Public Use
  Company Number: 219310

PATIENT
  Sex: Female

DRUGS (4)
  1. PICATO GEL [Suspect]
     Indication: ACTINIC KERATOSIS
     Route: 061
     Dates: start: 20121001, end: 20121002
  2. LEVOXYL (LEVOTHYROXINE SODIUM) [Concomitant]
  3. MULTIVITAMIN (MULTIVAMIN) [Concomitant]
  4. GLUCOSAMINE (GLUCOSAMINE) [Concomitant]

REACTIONS (5)
  - Application site irritation [None]
  - Application site erythema [None]
  - Application site burn [None]
  - Accidental exposure to product [None]
  - Incorrect product storage [None]
